FAERS Safety Report 4995359-0 (Version None)
Quarter: 2006Q2

REPORT INFORMATION
  Report Type: 
  Country: None (occurrence: None)
  Receive Date: 20060508
  Receipt Date: 20040601
  Transmission Date: 20061013
  Serious: Yes (Other)
  Sender: FDA-Public Use
  Company Number: DE-BRISTOL-MYERS SQUIBB COMPANY-13339106

PATIENT
  Sex: Male
  Weight: 50 kg

DRUGS (20)
  1. SUSTIVA [Suspect]
     Indication: HIV INFECTION
     Dosage: RESTARTED JUN-2002
     Dates: start: 19980701
  2. ZERIT [Suspect]
     Indication: HIV INFECTION
     Dosage: RESTARTED JUN-2002
     Dates: start: 19990401
  3. ZIDOVUDINE [Concomitant]
     Indication: HIV INFECTION
     Dates: start: 19960401
  4. ZALCITABINE [Concomitant]
     Indication: HIV INFECTION
     Dates: start: 19960401
  5. LAMIVUDINE [Concomitant]
     Indication: HIV INFECTION
     Dosage: RESTARTED MAY 1996
     Dates: start: 19960401
  6. INDINIVIR SULFATE [Concomitant]
     Indication: HIV INFECTION
     Dates: start: 19960501
  7. ABACAVIR [Concomitant]
     Indication: HIV INFECTION
     Dosage: RESTARTED ON APR 1999 AND RESTARTED AGAIN JUN 2002
     Dates: start: 19980601
  8. RITONAVIR [Concomitant]
     Indication: HIV INFECTION
     Dates: start: 19980601
  9. NELFINAVIR [Concomitant]
     Indication: HIV INFECTION
     Dates: start: 19980701
  10. SAQUINAVIR [Concomitant]
     Indication: HIV INFECTION
     Dates: start: 19980701
  11. TENOFOVIR [Concomitant]
     Indication: HIV INFECTION
     Dates: start: 20020601
  12. FORTOVASE [Concomitant]
     Indication: HIV INFECTION
     Dates: start: 20020601
  13. KALETRA [Concomitant]
     Indication: HIV INFECTION
     Dates: start: 20020601
  14. NORVIR [Concomitant]
     Indication: HIV INFECTION
     Dates: start: 20020601
  15. FOSCAVIR [Concomitant]
     Indication: CYTOMEGALOVIRUS MUCOCUTANEOUS ULCER
  16. OMEPRAZOLE [Concomitant]
     Dates: start: 20040401
  17. BACTRIM [Concomitant]
     Dates: start: 20040401
  18. MITOMYCIN [Concomitant]
     Indication: ANAL CANCER
     Dosage: 10 MG/M2 BSA DAYS 1 AND 28
     Dates: start: 20030201
  19. FLUOROURACIL [Concomitant]
     Indication: ANAL CANCER
     Dosage: 1000 MG/M2/24HOUR DAYS 1 AND 28
  20. RADIOTHERAPY [Concomitant]
     Indication: ANAL CANCER
     Dosage: 1.8 GRAY/DAY IN 30 FRACTIONS OVER 40 DAYS,

REACTIONS (13)
  - ANAL CANCER [None]
  - BONE DISORDER [None]
  - CONDYLOMA ACUMINATUM [None]
  - CYTOMEGALOVIRUS CHORIORETINITIS [None]
  - FOLATE DEFICIENCY [None]
  - GASTROENTERITIS [None]
  - GIARDIASIS [None]
  - HYPERCHOLESTEROLAEMIA [None]
  - HYPERTRIGLYCERIDAEMIA [None]
  - LIPOHYPERTROPHY [None]
  - OSTEOARTHRITIS [None]
  - PROTEINURIA [None]
  - VIRAL LOAD INCREASED [None]
